FAERS Safety Report 16861390 (Version 8)
Quarter: 2020Q1

REPORT INFORMATION
  Report Type: Report from Study
  Country: CA (occurrence: CA)
  Receive Date: 20190927
  Receipt Date: 20200211
  Transmission Date: 20200409
  Serious: Yes (Life-Threatening, Hospitalization)
  Sender: FDA-Public Use
  Company Number: CA-ROCHE-2421816

PATIENT
  Age: 51 Year
  Sex: Female
  Weight: 68.6 kg

DRUGS (19)
  1. PERTUZUMAB. [Suspect]
     Active Substance: PERTUZUMAB
     Indication: HER-2 POSITIVE BREAST CANCER
     Dosage: LOADING DOSE.
     Route: 042
     Dates: start: 20190514
  2. RED BLOOD CELLS, CONCENTRATED [Concomitant]
     Active Substance: HUMAN RED BLOOD CELL
     Indication: ANAEMIA
     Route: 065
     Dates: start: 20190923, end: 20190924
  3. TYLENOL [Concomitant]
     Active Substance: ACETAMINOPHEN
     Indication: HEADACHE
     Route: 065
     Dates: start: 20190324
  4. LYRICA [Concomitant]
     Active Substance: PREGABALIN
     Indication: PAIN IN EXTREMITY
     Route: 065
     Dates: start: 20190913
  5. PLACEBO [Suspect]
     Active Substance: UNSPECIFIED INGREDIENT
     Indication: HER-2 POSITIVE BREAST CANCER
     Dosage: MOST RECENT DOSE PRIOR TO EVENT ON 16/SEP/2019
     Route: 042
     Dates: start: 20190319
  6. ZOPICLONE [Concomitant]
     Active Substance: ZOPICLONE
     Indication: INSOMNIA
     Route: 065
     Dates: start: 20190326
  7. DURICEF [Concomitant]
     Active Substance: CEFADROXIL
     Indication: CELLULITIS
     Route: 065
     Dates: start: 20190909
  8. CLOXACILINA [CLOXACILLIN] [Concomitant]
     Active Substance: CLOXACILLIN
     Indication: NAIL INFECTION
     Route: 065
     Dates: start: 20190621
  9. TRASTUZUMAB. [Suspect]
     Active Substance: TRASTUZUMAB
     Indication: HER-2 POSITIVE BREAST CANCER
     Dosage: LOADING DOSE.
     Route: 042
     Dates: start: 20190514
  10. TRASTUZUMAB. [Suspect]
     Active Substance: TRASTUZUMAB
     Dosage: MAINTENANCE DOSE.?ON 16/JUL/2019, SHE RECEIVED THE MOST RECENT DOSE (387 MG) OF  TRASTUZUMAB PRIOR T
     Route: 042
  11. PACLITAXEL. [Suspect]
     Active Substance: PACLITAXEL
     Indication: HER-2 POSITIVE BREAST CANCER
     Dosage: ON 30/JUL/2019, SHE RECEIVED THE MOST RECENT DOSE (136 MG) OF PACLITAXEL PRIOR TO AE (ADVERSE EVENT)
     Route: 042
     Dates: start: 20190514
  12. PERTUZUMAB. [Suspect]
     Active Substance: PERTUZUMAB
     Dosage: MAINTENANCE DOSE.?ON 16/JUL/2019, SHE RECEIVED THE MOST RECENT DOSE (420 MG) OF  PERTUZUMAB PRIOR TO
     Route: 042
  13. TRASTUZUMAB EMTANSINE [Suspect]
     Active Substance: ADO-TRASTUZUMAB EMTANSINE
     Indication: HER-2 POSITIVE BREAST CANCER
     Dosage: ON 16/SEP/2019, SHE RECEIVED THE MOST RECENT DOSE (247 MG) OF TRASTUZUMAB EMTANSINEPRIOR TO AE (ADVE
     Route: 042
     Dates: start: 20190916
  14. NAPROXEN. [Concomitant]
     Active Substance: NAPROXEN
     Indication: PAIN IN EXTREMITY
     Route: 065
     Dates: start: 20190909
  15. CYCLOPHOSPHAMIDE. [Suspect]
     Active Substance: CYCLOPHOSPHAMIDE
     Indication: HER-2 POSITIVE BREAST CANCER
     Dosage: ON 30/APR/2019, SHE RECEIVED THE MOST RECENT DOSE (1020 MG) OF CYCLOPHOSPHAMIDE PRIOR TO AE (ADVERSE
     Route: 042
     Dates: start: 20190319
  16. DILAUDID [Concomitant]
     Active Substance: HYDROMORPHONE HYDROCHLORIDE
     Indication: PAIN IN EXTREMITY
     Route: 065
     Dates: start: 20190909
  17. ATIVAN [Concomitant]
     Active Substance: LORAZEPAM
     Indication: INSOMNIA
     Route: 065
     Dates: start: 20190923
  18. DOXORUBICIN [Suspect]
     Active Substance: DOXORUBICIN
     Indication: HER-2 POSITIVE BREAST CANCER
     Dosage: ON 30/APR/2019, SHE RECEIVED THE MOST RECENT DOSE (102 MG) OF DOXORUBICIN PRIOR TO AE (ADVERSE EVENT
     Route: 042
     Dates: start: 20190319
  19. ZANTAC [Concomitant]
     Active Substance: RANITIDINE HYDROCHLORIDE
     Indication: DYSPEPSIA
     Route: 065
     Dates: start: 20190504

REACTIONS (1)
  - Hepatic haemorrhage [Recovered/Resolved]

NARRATIVE: CASE EVENT DATE: 20190923
